FAERS Safety Report 6015823-5 (Version None)
Quarter: 2008Q4

REPORT INFORMATION
  Report Type: 
  Country: None (occurrence: None)
  Receive Date: 20081222
  Receipt Date: 20081219
  Transmission Date: 20090506
  Serious: Yes (Congenital Anomaly)
  Sender: FDA-Public Use
  Company Number: A0680964A

PATIENT
  Sex: Male
  Weight: 3.7 kg

DRUGS (5)
  1. PAXIL CR [Suspect]
     Indication: DEPRESSION
     Dosage: 25MG THREE TIMES PER DAY
     Dates: start: 20051001, end: 20060401
  2. ALBUTEROL [Concomitant]
     Dates: start: 19840101, end: 20071201
  3. VITAMIN TAB [Concomitant]
  4. COCAINE [Concomitant]
  5. MARIJUANA [Concomitant]

REACTIONS (3)
  - CARDIAC DISORDER [None]
  - DRUG EXPOSURE DURING PREGNANCY [None]
  - PULMONARY ARTERY STENOSIS CONGENITAL [None]
